FAERS Safety Report 8268134-1 (Version None)
Quarter: 2012Q2

REPORT INFORMATION
  Report Type: 
  Country: None (occurrence: None)
  Receive Date: 20120409
  Receipt Date: 20120325
  Transmission Date: 20120825
  Serious: Yes (Death, Hospitalization)
  Sender: FDA-Public Use
  Company Number: FI-ROCHE-1052523

PATIENT
  Age: 51 Year
  Sex: Male

DRUGS (2)
  1. MYCOPHENOLATE MOFETIL (CELLCEPT) [Suspect]
     Indication: IMMUNOSUPPRESSION
     Dates: start: 20100401
  2. NEORAL [Suspect]
     Indication: IMMUNOSUPPRESSION
     Dates: start: 20100401

REACTIONS (6)
  - PYURIA [None]
  - RESPIRATORY TRACT INFECTION [None]
  - COLORECTAL CANCER METASTATIC [None]
  - INFECTION [None]
  - WEIGHT DECREASED [None]
  - BLOOD CREATININE INCREASED [None]
